FAERS Safety Report 5942854-3 (Version None)
Quarter: 2008Q4

REPORT INFORMATION
  Report Type: 
  Country: None (occurrence: None)
  Receive Date: 20081106
  Receipt Date: 20081027
  Transmission Date: 20090506
  Serious: Yes (Other)
  Sender: FDA-Public Use
  Company Number: US-ROCHE-593722

PATIENT
  Sex: Female
  Weight: 50.8 kg

DRUGS (2)
  1. CAPECITABINE [Suspect]
     Indication: COLORECTAL CANCER
     Dosage: DOSE: 1500 MG IN AM AND 1000 MG IN PM
     Route: 048
  2. OXALIPLATIN [Concomitant]

REACTIONS (2)
  - CROHN'S DISEASE [None]
  - DIARRHOEA [None]
